FAERS Safety Report 11849847 (Version 1)
Quarter: 2015Q4

REPORT INFORMATION
  Report Type: Spontaneous
  Country: US (occurrence: US)
  Receive Date: 20151218
  Receipt Date: 20151218
  Transmission Date: 20160305
  Serious: No
  Sender: FDA-Public Use
  Company Number: US-VIIV HEALTHCARE LIMITED-US2015GSK176898

PATIENT
  Sex: Female

DRUGS (1)
  1. ZIAGEN [Suspect]
     Active Substance: ABACAVIR SULFATE
     Indication: HIV INFECTION
     Dosage: UNK

REACTIONS (3)
  - Exposure during pregnancy [Unknown]
  - Impaired work ability [Not Recovered/Not Resolved]
  - High risk pregnancy [Not Recovered/Not Resolved]
